FAERS Safety Report 22746754 (Version 2)
Quarter: 2024Q2

REPORT INFORMATION
  Report Type: Spontaneous
  Country: GB (occurrence: GB)
  Receive Date: 20230725
  Receipt Date: 20240410
  Transmission Date: 20240716
  Serious: Yes (Hospitalization)
  Sender: FDA-Public Use
  Company Number: GB-MHRA-MED-202307071303342860-TCMPF

PATIENT
  Age: 88 Year
  Sex: Female

DRUGS (1)
  1. SERTRALINE [Suspect]
     Active Substance: SERTRALINE HYDROCHLORIDE
     Indication: Product used for unknown indication
     Dosage: 50 MILLIGRAM, OD
     Route: 065

REACTIONS (3)
  - Hyponatraemia [Recovering/Resolving]
  - Somnolence [Recovered/Resolved]
  - Confusional state [Recovered/Resolved]
